FAERS Safety Report 12760684 (Version 2)
Quarter: 2018Q4

REPORT INFORMATION
  Report Type: Report from Study
  Country: None (occurrence: AR)
  Receive Date: 20160919
  Receipt Date: 20181012
  Transmission Date: 20190204
  Serious: Yes (Death, Other)
  Sender: FDA-Public Use
  Company Number: AR-ABBVIE-16K-007-1730865-00

PATIENT
  Age: 68 Year
  Sex: Female

DRUGS (4)
  1. HUMIRA [Suspect]
     Active Substance: ADALIMUMAB
     Indication: PSORIASIS
     Route: 058
  2. LOSARTAN. [Concomitant]
     Active Substance: LOSARTAN
     Indication: PRODUCT USED FOR UNKNOWN INDICATION
     Dosage: EVERYDAY
     Route: 048
  3. LEVOTHYROXINE. [Concomitant]
     Active Substance: LEVOTHYROXINE
     Indication: PRODUCT USED FOR UNKNOWN INDICATION
     Dosage: 3 DAYS TOOK 100 MG + 4 DAYS TOOK 150MG
     Route: 048
  4. HUMIRA [Suspect]
     Active Substance: ADALIMUMAB
     Indication: PSORIASIS
     Route: 058
     Dates: start: 20150807

REACTIONS (6)
  - Umbilical hernia [Recovering/Resolving]
  - Ascites [Fatal]
  - Amnesia [Not Recovered/Not Resolved]
  - Intestinal perforation [Recovering/Resolving]
  - Renal failure [Recovering/Resolving]
  - Disorientation [Not Recovered/Not Resolved]

NARRATIVE: CASE EVENT DATE: 201608
